FAERS Safety Report 12395643 (Version 1)
Quarter: 2016Q2

REPORT INFORMATION
  Report Type: Spontaneous
  Country: GB (occurrence: GB)
  Receive Date: 20160523
  Receipt Date: 20160523
  Transmission Date: 20160815
  Serious: Yes (Other)
  Sender: FDA-Public Use
  Company Number: GB-TEVA-660207ACC

PATIENT
  Age: 57 Year
  Sex: Female
  Weight: 78.92 kg

DRUGS (1)
  1. VENLAFAXINE [Suspect]
     Active Substance: VENLAFAXINE HYDROCHLORIDE
     Indication: DEPRESSION
     Route: 048
     Dates: start: 201203, end: 20160319

REACTIONS (14)
  - Formication [Recovering/Resolving]
  - Derealisation [Not Recovered/Not Resolved]
  - Vertigo [Not Recovered/Not Resolved]
  - Abdominal discomfort [Not Recovered/Not Resolved]
  - Chills [Recovering/Resolving]
  - Memory impairment [Not Recovered/Not Resolved]
  - Mental disorder [Not Recovered/Not Resolved]
  - Depressed mood [Not Recovered/Not Resolved]
  - Tearfulness [Not Recovered/Not Resolved]
  - Sleep disorder [Not Recovered/Not Resolved]
  - Drug withdrawal syndrome [Unknown]
  - Paraesthesia [Recovering/Resolving]
  - Hyperhidrosis [Recovering/Resolving]
  - Thinking abnormal [Not Recovered/Not Resolved]

NARRATIVE: CASE EVENT DATE: 20160426
